FAERS Safety Report 24224264 (Version 1)
Quarter: 2024Q3

REPORT INFORMATION
  Report Type: Spontaneous
  Country: US (occurrence: None)
  Receive Date: 20240818
  Receipt Date: 20240818
  Transmission Date: 20241017
  Serious: Yes (Disabling)
  Sender: Public
  Company Number: None

PATIENT
  Age: 79 Year
  Sex: Female
  Weight: 59.4 kg

DRUGS (6)
  1. CRESTOR [Suspect]
     Active Substance: ROSUVASTATIN CALCIUM
     Indication: Low density lipoprotein increased
     Dosage: 90 TABLETS DAILY ORAL
     Route: 048
     Dates: start: 20231016, end: 20240815
  2. HYDRALAZINE [Concomitant]
  3. HYDROCHLOROTHIAZIDE [Concomitant]
     Active Substance: HYDROCHLOROTHIAZIDE
  4. CARVEDILOL [Concomitant]
     Active Substance: CARVEDILOL
  5. Claritin [Concomitant]
  6. meclizine [Concomitant]

REACTIONS (6)
  - Muscle atrophy [None]
  - Weight decreased [None]
  - Arthralgia [None]
  - Pain in extremity [None]
  - Abdominal pain upper [None]
  - Fatigue [None]

NARRATIVE: CASE EVENT DATE: 20231016
